FAERS Safety Report 9275550 (Version 1)
Quarter: 2013Q2

REPORT INFORMATION
  Report Type: Spontaneous
  Country: US (occurrence: US)
  Receive Date: 20130507
  Receipt Date: 20130507
  Transmission Date: 20140414
  Serious: No
  Sender: FDA-Public Use
  Company Number: US-PFIZER INC-2013138395

PATIENT
  Age: 17 Year
  Sex: Male
  Weight: 47.62 kg

DRUGS (1)
  1. ZOSYN [Suspect]
     Indication: CYSTIC FIBROSIS
     Dosage: 4.5 MG, EVERY 8 HOURS
     Dates: start: 20130418

REACTIONS (1)
  - Skin exfoliation [Not Recovered/Not Resolved]
